FAERS Safety Report 6854912-X (Version None)
Quarter: 2010Q3

REPORT INFORMATION
  Report Type: 
  Country: None (occurrence: None)
  Receive Date: 20100717
  Receipt Date: 20080114
  Transmission Date: 20110219
  Serious: No
  Sender: FDA-Public Use
  Company Number: US-PFIZER INC-2008004751

PATIENT
  Sex: Female

DRUGS (2)
  1. CHANTIX [Suspect]
     Indication: SMOKING CESSATION THERAPY
  2. HYDROCHLOROTHIAZIDE [Concomitant]

REACTIONS (4)
  - DIARRHOEA [None]
  - FLATULENCE [None]
  - MIDDLE INSOMNIA [None]
  - POLLAKIURIA [None]
